FAERS Safety Report 7232909-8 (Version None)
Quarter: 2011Q1

REPORT INFORMATION
  Report Type: 
  Country: None (occurrence: None)
  Receive Date: 20110119
  Receipt Date: 20110110
  Transmission Date: 20110831
  Serious: Yes (Other)
  Sender: FDA-Public Use
  Company Number: PHHY2010US70221

PATIENT
  Sex: Female

DRUGS (3)
  1. HYDROCHLOROTHIAZIDE [Concomitant]
     Dosage: 12.5 MG, UNK
  2. DIOVAN [Suspect]
     Dosage: 160 MG, UNK
     Dates: start: 20100929, end: 20101017
  3. LISINOPRIL [Suspect]

REACTIONS (3)
  - CHEST PAIN [None]
  - BLOOD PRESSURE INCREASED [None]
  - BRADYCARDIA [None]
